FAERS Safety Report 4846010-1 (Version None)
Quarter: 2005Q4

REPORT INFORMATION
  Report Type: 
  Country: None (occurrence: None)
  Receive Date: 20051201
  Receipt Date: 20051117
  Transmission Date: 20060501
  Serious: Yes (Hospitalization)
  Sender: FDA-Public Use
  Company Number: 05BEL0231

PATIENT
  Age: 60 Year
  Sex: Female

DRUGS (2)
  1. AGGRASTAT [Suspect]
     Indication: ANGINA UNSTABLE
  2. INSULIN [Concomitant]

REACTIONS (1)
  - MYOCARDIAL INFARCTION [None]
